FAERS Safety Report 7599635-7 (Version None)
Quarter: 2011Q2

REPORT INFORMATION
  Report Type: 
  Country: None (occurrence: None)
  Receive Date: 20110623
  Receipt Date: 20110615
  Transmission Date: 20111010
  Serious: Yes (Other)
  Sender: FDA-Public Use
  Company Number: 2011027291

PATIENT
  Age: 37 Year
  Sex: Female
  Weight: 99.7913 kg

DRUGS (17)
  1. POTASSIUM [Concomitant]
  2. ZEMAIRA [Suspect]
  3. XANAX [Concomitant]
  4. PRAVACHOL [Concomitant]
  5. HYDROCODONE [Concomitant]
  6. COREG [Concomitant]
  7. ZEMAIRA [Suspect]
     Indication: ALPHA-1 ANTI-TRYPSIN DEFICIENCY
     Dosage: 60 MG/KG 1X/WEEK, INFUSED 0.08ML/KG/MIN (8.4ML/MIN) INTRAVENOUS (NOT OTHERWISE SPECIFIED),
     Route: 042
     Dates: start: 20100801
  8. ZEMAIRA [Suspect]
  9. PHENERGAN (PROMETHAZINE0 [Concomitant]
  10. FLEXERIL [Concomitant]
  11. ADVAIR 100-50 (SERETIDE) [Concomitant]
  12. ZEMAIRA [Suspect]
  13. ZEMAIRA [Suspect]
  14. LASIX [Concomitant]
  15. ALBUTEROL [Concomitant]
  16. HEPARIN [Concomitant]
  17. NYSTATIN [Concomitant]

REACTIONS (4)
  - BRONCHITIS [None]
  - VOMITING [None]
  - CANDIDIASIS [None]
  - NAUSEA [None]
